FAERS Safety Report 10048468 (Version 1)
Quarter: 2014Q1

REPORT INFORMATION
  Report Type: Spontaneous
  Country: US (occurrence: None)
  Receive Date: 20140306
  Receipt Date: 20140306
  Transmission Date: 20141002
  Serious: Yes (Other)
  Sender: FDA-Public Use
  Company Number: 163-21880-13020696

PATIENT
  Age: 69 Year
  Sex: Female
  Weight: 102.2 kg

DRUGS (11)
  1. REVLIMID [Suspect]
     Indication: PLASMA CELL MYELOMA
     Dosage: 21 IN 28 D
     Route: 048
     Dates: start: 20110103
  2. INFUSION (I.V. SOLUTIONS) [Concomitant]
  3. PREDNISONE [Concomitant]
  4. DOXYCYCLINE HYCLATE [Concomitant]
  5. PROAIR HFA (SALBUTAMOL SULFATE) [Concomitant]
  6. DEXAMETHASONE [Concomitant]
  7. FUROSEMIDE [Concomitant]
  8. EXFORGE (AMLODIPINE W/VALSARTAN) [Concomitant]
  9. FLOR CON (POTASSIUM CHLORIDE) [Concomitant]
  10. OMEPRAZOLE [Concomitant]
  11. WARFARIN SODIUM [Concomitant]

REACTIONS (8)
  - Memory impairment [None]
  - Fall [None]
  - Local swelling [None]
  - Vision blurred [None]
  - Platelet count decreased [None]
  - Pneumonia [None]
  - Dizziness [None]
  - Confusional state [None]
